FAERS Safety Report 7298294-0 (Version None)
Quarter: 2011Q1

REPORT INFORMATION
  Report Type: 
  Country: None (occurrence: None)
  Receive Date: 20110217
  Receipt Date: 20100406
  Transmission Date: 20110831
  Serious: No
  Sender: FDA-Public Use
  Company Number: US-PFIZER INC-2010043614

PATIENT
  Sex: Male

DRUGS (4)
  1. HYDROCORTISONE [Concomitant]
     Dosage: 20 MG, UNK
     Route: 048
  2. TAMSULOSIN HYDROCHLORIDE [Concomitant]
     Dosage: UNK
     Route: 048
  3. XALATAN [Suspect]
     Indication: GLAUCOMA
     Dosage: UNK
     Route: 047
     Dates: start: 20050101
  4. WARFARIN SODIUM [Concomitant]
     Dosage: UNK
     Route: 048

REACTIONS (1)
  - EYE IRRITATION [None]
